FAERS Safety Report 4471347-8 (Version None)
Quarter: 2004Q4

REPORT INFORMATION
  Report Type: 
  Country: None (occurrence: None)
  Receive Date: 20041006
  Receipt Date: 20040924
  Transmission Date: 20050328
  Serious: Yes (Disabling)
  Sender: FDA-Public Use
  Company Number: 2004EU001777

PATIENT
  Age: 13 Year
  Sex: Male
  Weight: 45 kg

DRUGS (3)
  1. PROGRAF [Suspect]
     Indication: RENAL TRANSPLANT
     Dosage: D
     Dates: start: 20020101, end: 20040901
  2. CORTICOSTEROIDS [Suspect]
     Dosage: D
     Dates: start: 19990101
  3. IMUREL [Concomitant]

REACTIONS (8)
  - AMYOTROPHY [None]
  - ARTHRALGIA [None]
  - BONE DISORDER [None]
  - DIFFICULTY IN WALKING [None]
  - KYPHOSCOLIOSIS [None]
  - MYALGIA [None]
  - MYOPATHY [None]
  - OSTEOPOROSIS [None]
